FAERS Safety Report 7918690-5 (Version None)
Quarter: 2011Q4

REPORT INFORMATION
  Report Type: 
  Country: None (occurrence: None)
  Receive Date: 20111116
  Receipt Date: 20111111
  Transmission Date: 20120403
  Serious: Yes (Other)
  Sender: FDA-Public Use
  Company Number: JP-PFIZER INC-2011277695

PATIENT
  Age: 47 Year
  Sex: Female

DRUGS (1)
  1. NASANYL [Suspect]
     Dosage: 1 PUSH, 2X/DAY
     Route: 045
     Dates: start: 20111024, end: 20111106

REACTIONS (1)
  - UTERINE HAEMORRHAGE [None]
